FAERS Safety Report 11079521 (Version 1)
Quarter: 2015Q2

REPORT INFORMATION
  Report Type: Report from Study
  Country: FR (occurrence: FR)
  Receive Date: 20150430
  Receipt Date: 20150430
  Transmission Date: 20150821
  Serious: Yes (Hospitalization)
  Sender: FDA-Public Use
  Company Number: FR-MYLANLABS-2015M1010189

PATIENT

DRUGS (8)
  1. METHOTREXATE [Suspect]
     Active Substance: METHOTREXATE
     Indication: PSORIASIS
     Dosage: 5 MG, QW
     Route: 058
     Dates: start: 20111209, end: 20111210
  2. SPECIAFOLDINE [Concomitant]
     Active Substance: FOLIC ACID
     Indication: PRODUCT USED FOR UNKNOWN INDICATION
     Dosage: 5 MG, QW
     Route: 048
     Dates: start: 20130419
  3. METHOTREXATE [Suspect]
     Active Substance: METHOTREXATE
     Dosage: 15 MG, QW
     Route: 058
     Dates: start: 20111216, end: 20120119
  4. METHOTREXATE [Suspect]
     Active Substance: METHOTREXATE
     Dosage: 15 MG, QW
     Route: 058
     Dates: start: 201202, end: 201304
  5. METHOTREXATE [Suspect]
     Active Substance: METHOTREXATE
     Dosage: 5 MG, QW
     Route: 058
     Dates: start: 20130419, end: 20130809
  6. METHOTREXATE [Suspect]
     Active Substance: METHOTREXATE
     Dosage: 7.5 MG, QW
     Route: 058
     Dates: start: 20130809, end: 20140912
  7. METHOTREXATE [Suspect]
     Active Substance: METHOTREXATE
     Dosage: 5 MG, QW
     Route: 058
     Dates: start: 20140912
  8. METHOTREXATE [Suspect]
     Active Substance: METHOTREXATE
     Dosage: 10 MG, QW
     Route: 058
     Dates: start: 201304, end: 201308

REACTIONS (3)
  - Leukocyturia [Unknown]
  - Bladder mass [Recovered/Resolved]
  - Acarodermatitis [Unknown]

NARRATIVE: CASE EVENT DATE: 20131212
